FAERS Safety Report 17688994 (Version 1)
Quarter: 2020Q2

REPORT INFORMATION
  Report Type: Spontaneous
  Country: US (occurrence: US)
  Receive Date: 20200421
  Receipt Date: 20200421
  Transmission Date: 20200714
  Serious: Yes (Hospitalization)
  Sender: FDA-Public Use
  Company Number: None

PATIENT
  Age: 81 Year
  Sex: Female
  Weight: 74.7 kg

DRUGS (7)
  1. KEPPRA [Concomitant]
     Active Substance: LEVETIRACETAM
  2. PANTOPRAZOLE 40MG [Concomitant]
     Active Substance: PANTOPRAZOLE SODIUM
  3. DEXAMETHASONE 4MG [Concomitant]
     Active Substance: DEXAMETHASONE
  4. TEMOZOLOMIDE. [Suspect]
     Active Substance: TEMOZOLOMIDE
     Indication: BRAIN NEOPLASM MALIGNANT
     Dosage: ?          OTHER FREQUENCY:QD X5 DAYS Q28DAYS;?
     Route: 048
     Dates: start: 20200128, end: 20200416
  5. OSCAL 500/200MG [Concomitant]
  6. LISINOPRIL/HYDROCHLOROTHIAZIDE 20/25MG [Concomitant]
  7. MULTIVITAMIN [Concomitant]
     Active Substance: VITAMINS

REACTIONS (1)
  - Thrombosis [None]

NARRATIVE: CASE EVENT DATE: 20200416
